FAERS Safety Report 5272368-8 (Version None)
Quarter: 2007Q1

REPORT INFORMATION
  Report Type: 
  Country: None (occurrence: None)
  Receive Date: 20061214
  Receipt Date: 20060727
  Transmission Date: 20070707
  Serious: Yes (Other)
  Sender: FDA-Public Use
  Company Number: 2006094102

PATIENT
  Age: 59 Year
  Sex: Male
  Weight: 79.3795 kg

DRUGS (2)
  1. BEXTRA [Suspect]
     Indication: ARTHRALGIA
     Dosage: 20 - 40 MG (20 MG, ONE OR TWO/DAY)
     Dates: start: 20021101, end: 20040426
  2. BEXTRA [Suspect]
     Indication: MUSCULOSKELETAL PAIN
     Dosage: 20 - 40 MG (20 MG, ONE OR TWO/DAY)
     Dates: start: 20021101, end: 20040426

REACTIONS (1)
  - MYOCARDIAL INFARCTION [None]
